FAERS Safety Report 11977573 (Version 3)
Quarter: 2019Q4

REPORT INFORMATION
  Report Type: Spontaneous
  Country: US (occurrence: US)
  Receive Date: 20160129
  Receipt Date: 20191021
  Transmission Date: 20200122
  Serious: Yes (Other)
  Sender: FDA-Public Use
  Company Number: US-TEVA-628433ACC

PATIENT
  Sex: Female
  Weight: 45.4 kg

DRUGS (1)
  1. PARAGARD T 380A [Suspect]
     Active Substance: COPPER
     Indication: CONTRACEPTION
     Dates: start: 20150211

REACTIONS (4)
  - Pregnancy on contraceptive [Unknown]
  - Embedded device [Unknown]
  - Maternal exposure during pregnancy [Unknown]
  - Uterine perforation [Unknown]
